FAERS Safety Report 18432226 (Version 1)
Quarter: 2020Q4

REPORT INFORMATION
  Report Type: Spontaneous
  Country: FR (occurrence: FR)
  Receive Date: 20201027
  Receipt Date: 20201027
  Transmission Date: 20210114
  Serious: Yes (Life-Threatening, Hospitalization)
  Sender: FDA-Public Use
  Company Number: FR-PFIZER INC-2020412313

PATIENT
  Age: 17 Year
  Sex: Male

DRUGS (7)
  1. METHADONE [Suspect]
     Active Substance: METHADONE HYDROCHLORIDE
     Dosage: UNK
     Route: 005
  2. TRAMADOL. [Suspect]
     Active Substance: TRAMADOL
     Dosage: UNK, DAILY (200 TO 400 MG)
     Route: 048
  3. CODOLIPRANE [Suspect]
     Active Substance: ACETAMINOPHEN\CODEINE PHOSPHATE
     Dosage: VERY REGULAR
     Route: 048
  4. ALPRAZOLAM. [Suspect]
     Active Substance: ALPRAZOLAM
     Dosage: 4 TO 5 TABLETS PER DOSE REGULARLY
     Route: 048
  5. DONORMYL [DOXYLAMINE SUCCINATE] [Suspect]
     Active Substance: DOXYLAMINE SUCCINATE
     Dosage: UNK
     Route: 048
  6. SERESTA [Suspect]
     Active Substance: OXAZEPAM
     Dosage: UNK
     Route: 048
  7. VALIUM [Suspect]
     Active Substance: DIAZEPAM
     Dosage: UNK
     Route: 048

REACTIONS (5)
  - Off label use [Unknown]
  - Overdose [Unknown]
  - Product use issue [Unknown]
  - Toxicity to various agents [Not Recovered/Not Resolved]
  - Drug dependence [Not Recovered/Not Resolved]
